FAERS Safety Report 19259138 (Version 1)
Quarter: 2021Q2

REPORT INFORMATION
  Report Type: Spontaneous
  Country: US (occurrence: US)
  Receive Date: 20210514
  Receipt Date: 20210514
  Transmission Date: 20210717
  Serious: Yes (Death, Other)
  Sender: FDA-Public Use
  Company Number: US-AMGEN-USASP2021072183

PATIENT
  Age: 24 Month
  Sex: Male
  Weight: 8.4 kg

DRUGS (6)
  1. METHYLPREDNISOLONE. [Concomitant]
     Active Substance: METHYLPREDNISOLONE
     Dosage: 20 MILLIGRAM/KILOGRAM, QD
     Route: 042
  2. FILGRASTIM [Suspect]
     Active Substance: FILGRASTIM
     Indication: PANCYTOPENIA
     Dosage: 40 MICROGRAM
     Route: 042
  3. RUXOLITINIB [Concomitant]
     Active Substance: RUXOLITINIB
     Indication: GRAFT VERSUS HOST DISEASE
     Dosage: 1.25 MILLIGRAM
     Route: 048
  4. TACROLIMUS. [Concomitant]
     Active Substance: TACROLIMUS
     Dosage: UNK
     Route: 048
  5. RUXOLITINIB [Concomitant]
     Active Substance: RUXOLITINIB
     Dosage: 1.5 MILLIGRAM
     Route: 048
  6. EPOETIN ALFA [Suspect]
     Active Substance: ERYTHROPOIETIN
     Indication: NEPHROGENIC ANAEMIA
     Dosage: 800 UNIT
     Route: 042

REACTIONS (4)
  - Graft versus host disease [Fatal]
  - Off label use [Unknown]
  - Renal failure [Fatal]
  - Pulmonary oedema [Fatal]
